FAERS Safety Report 9531920 (Version 1)
Quarter: 2013Q3

REPORT INFORMATION
  Report Type: Spontaneous
  Country: FR (occurrence: FR)
  Receive Date: 20130918
  Receipt Date: 20130918
  Transmission Date: 20140515
  Serious: Yes (Other)
  Sender: FDA-Public Use
  Company Number: FR-ROCHE-1276501

PATIENT
  Age: 65 Year
  Sex: Female

DRUGS (3)
  1. XOLAIR [Suspect]
     Indication: ASTHMA
     Route: 058
     Dates: start: 2009, end: 2009
  2. XOLAIR [Suspect]
     Route: 065
     Dates: start: 201306
  3. CORTISONE [Concomitant]
     Route: 065
     Dates: end: 201210

REACTIONS (1)
  - Myalgia [Recovered/Resolved]
